FAERS Safety Report 8701564 (Version 2)
Quarter: 2013Q4

REPORT INFORMATION
  Report Type: Spontaneous
  Country: US (occurrence: US)
  Receive Date: 20120803
  Receipt Date: 20131101
  Transmission Date: 20140711
  Serious: No
  Sender: FDA-Public Use
  Company Number: US-009507513-1207USA009733

PATIENT
  Sex: 0

DRUGS (16)
  1. PROAIR HFA [Concomitant]
     Dosage: UNK, PRN
     Route: 055
  2. PROMETHAZINE HYDROCHLORIDE [Concomitant]
     Indication: NAUSEA
     Dosage: 1 DF, PRN
     Dates: start: 20110517
  3. PROTONIX [Concomitant]
     Indication: GASTROOESOPHAGEAL REFLUX DISEASE
     Dosage: 1 DF, UNK
     Dates: start: 20110823
  4. SUCRALFATE [Concomitant]
     Dosage: 1 UNK, Q6H
     Route: 048
  5. TOPROL XL TABLETS [Concomitant]
     Indication: ESSENTIAL HYPERTENSION
     Dosage: 1 DF, BIW
     Dates: start: 20110517
  6. ULINASTATIN [Concomitant]
     Dosage: UNK, PRN
     Route: 048
  7. FOSAMAX [Suspect]
     Route: 048
  8. BENADRYL ALLERGY [Concomitant]
     Dosage: UNK, PRN
     Route: 048
  9. ESTRADIOL [Concomitant]
     Dosage: 1 DF, QD
     Dates: start: 20120308
  10. FLEXERIL [Concomitant]
     Dosage: 1 UNK, TID
     Route: 048
  11. HYDROCHLOROTHIAZIDE [Concomitant]
     Dosage: 25 MG, QD
     Route: 048
  12. LEXAPRO [Concomitant]
     Indication: ANXIETY
     Dosage: 1 UNK, UNK
     Route: 048
     Dates: start: 20120621
  13. LISINOPRIL [Concomitant]
     Dosage: 1 UNK, UNK
     Route: 048
  14. LORTAB [Concomitant]
     Indication: BACK PAIN
     Dosage: 1 DF, PRN
     Dates: start: 20120711
  15. NITROSTAT [Concomitant]
     Indication: CHEST PAIN
     Dosage: 1 DF, PRN
     Route: 060
     Dates: start: 20110517
  16. ONDANSETRON HYDROCHLORIDE [Concomitant]
     Dosage: 1 UNK, PRN
     Route: 048

REACTIONS (1)
  - Drug hypersensitivity [Unknown]
